FAERS Safety Report 6468673-X (Version None)
Quarter: 2009Q4

REPORT INFORMATION
  Report Type: 
  Country: None (occurrence: None)
  Receive Date: 20091203
  Receipt Date: 20091201
  Transmission Date: 20100525
  Serious: Yes (Other)
  Sender: FDA-Public Use
  Company Number: ZA-SANOFI-AVENTIS-200922080GDDC

PATIENT
  Age: 32 Year
  Sex: Female

DRUGS (3)
  1. INSULIN GLARGINE [Suspect]
     Route: 058
     Dates: start: 20081001
  2. INSULIN GLULISINE [Suspect]
     Indication: TYPE 1 DIABETES MELLITUS
     Route: 058
     Dates: start: 20081001
  3. METFORMIN HYDROCHLORIDE [Concomitant]
     Route: 048
     Dates: start: 20081001

REACTIONS (3)
  - ABORTION SPONTANEOUS [None]
  - DRUG EXPOSURE DURING PREGNANCY [None]
  - PROGESTERONE DECREASED [None]
